FAERS Safety Report 7544293-0 (Version None)
Quarter: 2011Q2

REPORT INFORMATION
  Report Type: 
  Country: None (occurrence: None)
  Receive Date: 20110613
  Receipt Date: 20071031
  Transmission Date: 20111010
  Serious: Yes (Hospitalization, Other)
  Sender: FDA-Public Use
  Company Number: PHFR2007GB02857

PATIENT
  Sex: Male

DRUGS (4)
  1. CLOZAPINE [Suspect]
     Dosage: 350 MG, ONCE/SINGLE
     Route: 048
  2. CLOZAPINE [Suspect]
     Indication: SCHIZOPHRENIA
     Route: 048
     Dates: start: 19960805, end: 20070809
  3. ASCORBIC ACID [Concomitant]
     Dosage: 200 MG, PER DAY
     Route: 048
  4. LANSOPRAZOLE [Concomitant]
     Dosage: 30 MG, PER DAY
     Route: 048

REACTIONS (7)
  - OESOPHAGEAL ULCER [None]
  - GASTROINTESTINAL HAEMORRHAGE [None]
  - PYELONEPHRITIS [None]
  - HAEMATEMESIS [None]
  - OESOPHAGITIS [None]
  - DIABETES MELLITUS [None]
  - GENERAL PHYSICAL HEALTH DETERIORATION [None]
